FAERS Safety Report 4500599-0 (Version None)
Quarter: 2004Q4

REPORT INFORMATION
  Report Type: 
  Country: None (occurrence: None)
  Receive Date: 20041115
  Receipt Date: 20041103
  Transmission Date: 20050328
  Serious: Yes (Other)
  Sender: FDA-Public Use
  Company Number: US-JNJFOC-20041101313

PATIENT
  Sex: Female

DRUGS (7)
  1. ELMIRON [Suspect]
     Indication: CYSTITIS INTERSTITIAL
     Route: 049
  2. ZOCOR [Concomitant]
  3. RANIDINE [Concomitant]
  4. PYRIDIUM [Concomitant]
  5. ACICHOL [Concomitant]
  6. AMITRIPTYLINE [Concomitant]
  7. UROCIT K [Concomitant]

REACTIONS (2)
  - ABDOMINAL DISCOMFORT [None]
  - LARGE INTESTINAL ULCER [None]
